FAERS Safety Report 8338634-4 (Version None)
Quarter: 2012Q2

REPORT INFORMATION
  Report Type: 
  Country: None (occurrence: None)
  Receive Date: 20120504
  Receipt Date: 20120426
  Transmission Date: 20120825
  Serious: Yes (Other)
  Sender: FDA-Public Use
  Company Number: US-ASTRAZENECA-2012SE27624

PATIENT
  Age: 53 Year
  Sex: Male

DRUGS (2)
  1. CHEMOTHERAPY [Suspect]
  2. CRESTOR [Suspect]
     Route: 048

REACTIONS (3)
  - MALAISE [None]
  - HYPOAESTHESIA [None]
  - NEOPLASM MALIGNANT [None]
